FAERS Safety Report 7900473-3 (Version None)
Quarter: 2011Q4

REPORT INFORMATION
  Report Type: 
  Country: None (occurrence: None)
  Receive Date: 20111108
  Receipt Date: 20111102
  Transmission Date: 20120403
  Serious: No
  Sender: FDA-Public Use
  Company Number: US-PFIZER INC-2011268357

PATIENT
  Age: 32 Year
  Sex: Female

DRUGS (1)
  1. EPIPEN [Suspect]

REACTIONS (2)
  - ACCIDENTAL EXPOSURE [None]
  - PAIN IN EXTREMITY [None]
